FAERS Safety Report 5351625-0 (Version None)
Quarter: 2007Q2

REPORT INFORMATION
  Report Type: 
  Country: None (occurrence: None)
  Receive Date: 20070521
  Receipt Date: 20070411
  Transmission Date: 20071010
  Serious: No
  Sender: FDA-Public Use
  Company Number: WAES 0704USA02514

PATIENT
  Age: 91 Year
  Sex: Female

DRUGS (1)
  1. JANUVIA [Suspect]
     Indication: DIABETES MELLITUS NON-INSULIN-DEPENDENT
     Dosage: DAILY/PO
     Route: 048

REACTIONS (2)
  - DRUG ADMINISTRATION ERROR [None]
  - GASTROINTESTINAL DISORDER [None]
